FAERS Safety Report 4689440-3 (Version None)
Quarter: 2005Q2

REPORT INFORMATION
  Report Type: 
  Country: None (occurrence: None)
  Receive Date: 20050311
  Receipt Date: 20050311
  Transmission Date: 20051028
  Serious: Yes (Hospitalization)
  Sender: FDA-Public Use
  Company Number: None

PATIENT
  Sex: Male

DRUGS (2)
  1. NEURONTIN [Suspect]
     Indication: CONVULSION
     Dosage: 300 MG 4 X DAILY
  2. NEURONTIN [Suspect]
     Indication: EPILEPSY
     Dosage: 300 MG 4 X DAILY

REACTIONS (1)
  - DRUG LEVEL DECREASED [None]
